FAERS Safety Report 5119087-6 (Version None)
Quarter: 2006Q3

REPORT INFORMATION
  Report Type: 
  Country: None (occurrence: None)
  Receive Date: 20060927
  Receipt Date: 20060914
  Transmission Date: 20061208
  Serious: Yes (Other)
  Sender: FDA-Public Use
  Company Number: 2006111089

PATIENT
  Age: 51 Year
  Sex: Female
  Weight: 52.1637 kg

DRUGS (4)
  1. SUDAFED SINUS + ALLERGY (PSEUDOEPHEDRINE, CHLORPHENIRAMINE) [Suspect]
     Indication: SINUS HEADACHE
     Dosage: 2 TABS ONCE, ORAL
     Route: 048
     Dates: start: 20060913, end: 20060913
  2. EXCEDRIN P.M. (DIPHENHYDRAMINE CITRATE, PARACETAMOL) [Suspect]
     Dosage: 2 TABS ONCE, ORAL
     Route: 048
     Dates: start: 20060913, end: 20060913
  3. THOMAPYRIN N (ACETYLSALICYLIC ACID, CAFFEINE, PARACETAMOL) [Suspect]
     Dosage: 2 TABS IN THE AM, ORAL
     Route: 048
     Dates: start: 20060914, end: 20060914
  4. VITAMINS NOS (VITAMINS NOS) [Concomitant]

REACTIONS (5)
  - ARRHYTHMIA [None]
  - DYSPNOEA [None]
  - GAIT DISTURBANCE [None]
  - HEART RATE INCREASED [None]
  - MUSCLE SPASMS [None]
